FAERS Safety Report 6045353-6 (Version None)
Quarter: 2009Q1

REPORT INFORMATION
  Report Type: 
  Country: None (occurrence: None)
  Receive Date: 20090121
  Receipt Date: 20090116
  Transmission Date: 20090719
  Serious: Yes (Hospitalization)
  Sender: FDA-Public Use
  Company Number: JP-ASTRAZENECA-2008AP09880

PATIENT
  Age: 59 Year
  Sex: Male
  Weight: 80 kg

DRUGS (4)
  1. IRESSA [Suspect]
     Indication: LUNG ADENOCARCINOMA
     Route: 048
     Dates: start: 20070511, end: 20070726
  2. IRESSA [Suspect]
     Route: 048
     Dates: start: 20071207, end: 20080924
  3. CISPLATIN [Concomitant]
     Dates: start: 20060919
  4. IRINOTECAN HYDROCHLORIDE [Concomitant]
     Dates: start: 20060919

REACTIONS (1)
  - PULMONARY TUBERCULOSIS [None]
